FAERS Safety Report 15812711 (Version 1)
Quarter: 2019Q1

REPORT INFORMATION
  Report Type: Spontaneous
  Country: PT (occurrence: PT)
  Receive Date: 20190111
  Receipt Date: 20190111
  Transmission Date: 20190417
  Serious: Yes (Death, Hospitalization, Other)
  Sender: FDA-Public Use
  Company Number: PT-SAKK-2019SA005486AA

PATIENT
  Age: 65 Year
  Sex: Male

DRUGS (2)
  1. GLIBENCLAMIDE [Suspect]
     Active Substance: GLYBURIDE
     Indication: TYPE 2 DIABETES MELLITUS
  2. METFORMIN HYDROCHLORIDE. [Suspect]
     Active Substance: METFORMIN HYDROCHLORIDE
     Indication: TYPE 2 DIABETES MELLITUS

REACTIONS (6)
  - Hypoglycaemic coma [Fatal]
  - Hypoglycaemic encephalopathy [Fatal]
  - Loss of consciousness [Fatal]
  - Hypoglycaemia [Unknown]
  - Extensor plantar response [Fatal]
  - Hyperreflexia [Fatal]
